FAERS Safety Report 13958073 (Version 1)
Quarter: 2017Q3

REPORT INFORMATION
  Report Type: Spontaneous
  Country: US (occurrence: US)
  Receive Date: 20170911
  Receipt Date: 20170911
  Transmission Date: 20171128
  Serious: Yes (Life-Threatening, Other)
  Sender: FDA-Public Use
  Company Number: US-ROCHE-1064909

PATIENT
  Age: 79 Year
  Sex: Male
  Weight: 98.97 kg

DRUGS (9)
  1. RITUXAN [Suspect]
     Active Substance: RITUXIMAB
     Indication: NON-HODGKIN^S LYMPHOMA
     Route: 042
     Dates: start: 20120425, end: 20120425
  2. CARDURA [Concomitant]
     Active Substance: DOXAZOSIN MESYLATE
     Route: 065
  3. PRILOSEC [Concomitant]
     Active Substance: OMEPRAZOLE MAGNESIUM
     Route: 065
  4. ASA [Concomitant]
     Active Substance: ASPIRIN
     Route: 065
  5. ZOLOFT [Concomitant]
     Active Substance: SERTRALINE HYDROCHLORIDE
     Route: 065
  6. TYLENOL [Concomitant]
     Active Substance: ACETAMINOPHEN
     Route: 048
  7. TOPROL XL [Concomitant]
     Active Substance: METOPROLOL SUCCINATE
     Route: 065
  8. BENADRYL [Concomitant]
     Active Substance: DIPHENHYDRAMINE HYDROCHLORIDE
     Route: 048
  9. FOLIC ACID. [Concomitant]
     Active Substance: FOLIC ACID
     Route: 065

REACTIONS (1)
  - Cardiac arrest [Recovered/Resolved with Sequelae]

NARRATIVE: CASE EVENT DATE: 20120425
